FAERS Safety Report 24351526 (Version 1)
Quarter: 2024Q3

REPORT INFORMATION
  Report Type: Report from Study
  Country: US (occurrence: US)
  Receive Date: 20240923
  Receipt Date: 20240923
  Transmission Date: 20241016
  Serious: No
  Sender: ROCHE
  Company Number: US-ROCHE-2537582

PATIENT
  Age: 72 Year
  Sex: Female

DRUGS (4)
  1. HERCEPTIN [Suspect]
     Active Substance: TRASTUZUMAB
     Indication: Malignant connective tissue neoplasm
     Dosage: 685 MG LOADING DOSE FOLLOWED BY 515MG?DATE OF TREATMENT: 23/MAR/2021, 13/APR/2021 AND 04/MAY/2021
     Route: 042
  2. HERCEPTIN [Suspect]
     Active Substance: TRASTUZUMAB
     Indication: Soft tissue sarcoma
     Dosage: 600 MG EVERY 3 WEEKS
     Route: 042
  3. PERJETA [Suspect]
     Active Substance: PERTUZUMAB
     Indication: Malignant connective tissue neoplasm
     Dosage: 840 MG LOADING DOSE FOLLOWED BY 420 MG?DATE OF TREATMENT: 23/MAR/2021, 13/APR/2021 AND 04/MAY/2021
     Route: 042
  4. PERJETA [Suspect]
     Active Substance: PERTUZUMAB
     Indication: Soft tissue sarcoma

REACTIONS (2)
  - Off label use [Unknown]
  - No adverse event [Unknown]
